FAERS Safety Report 15402466 (Version 1)
Quarter: 2018Q3

REPORT INFORMATION
  Report Type: Spontaneous
  Country: US (occurrence: US)
  Receive Date: 20180915
  Receipt Date: 20180915
  Transmission Date: 20181010
  Serious: No
  Sender: FDA-Public Use
  Company Number: None

PATIENT
  Age: 38 Year
  Sex: Female
  Weight: 73 kg

DRUGS (16)
  1. GABAPENTIN. [Concomitant]
     Active Substance: GABAPENTIN
  2. VIT B1 [Concomitant]
     Active Substance: THIAMINE HYDROCHLORIDE
  3. CA [Concomitant]
  4. VITAMIN D [Concomitant]
     Active Substance: CHOLECALCIFEROL
  5. L?LYSIN [Concomitant]
  6. COQ10 [Concomitant]
     Active Substance: UBIDECARENONE
  7. ACETYL?L?CARNITINE [Concomitant]
  8. CYMBALTA [Concomitant]
     Active Substance: DULOXETINE HYDROCHLORIDE
  9. METHOCARBAMOL. [Concomitant]
     Active Substance: METHOCARBAMOL
  10. NAPROXEN. [Concomitant]
     Active Substance: NAPROXEN
  11. AIMOVIG [Suspect]
     Active Substance: ERENUMAB-AOOE
     Indication: MIGRAINE
     Dosage: ?          QUANTITY:1 INJECTION ONCE PER MONTH
     Route: 058
  12. CARVEDILOL. [Concomitant]
     Active Substance: CARVEDILOL
  13. NARATRIPTAN [Concomitant]
     Active Substance: NARATRIPTAN HYDROCHLORIDE
  14. NALTREXONE [Concomitant]
     Active Substance: NALTREXONE
  15. MG [Concomitant]
     Active Substance: MAGNESIUM
  16. VITAMIN C [Concomitant]
     Active Substance: ASCORBIC ACID

REACTIONS (1)
  - Night sweats [None]

NARRATIVE: CASE EVENT DATE: 20180811
